FAERS Safety Report 8930339 (Version 1)
Quarter: 2012Q4

REPORT INFORMATION
  Report Type: 
  Country: MX (occurrence: MX)
  Receive Date: 20121128
  Receipt Date: 20121128
  Transmission Date: 20130627
  Serious: Yes (Death)
  Sender: FDA-Public Use
  Company Number: MX-GLAXOSMITHKLINE-A1003270A

PATIENT
  Sex: Male

DRUGS (2)
  1. SERETIDE [Suspect]
  2. UNSPECIFIED MEDICATIONS [Concomitant]
     Indication: CARDIAC DISORDER

REACTIONS (1)
  - Infarction [Fatal]
